FAERS Safety Report 16392535 (Version 2)
Quarter: 2019Q2

REPORT INFORMATION
  Report Type: Spontaneous
  Country: US (occurrence: US)
  Receive Date: 20190605
  Receipt Date: 20190625
  Transmission Date: 20190711
  Serious: Yes (Hospitalization)
  Sender: FDA-Public Use
  Company Number: US-ROCHE-2330146

PATIENT
  Age: 39 Year
  Sex: Female
  Weight: 72.64 kg

DRUGS (3)
  1. RITUXAN [Suspect]
     Active Substance: RITUXIMAB
     Indication: MIXED CONNECTIVE TISSUE DISEASE
     Dosage: LOAD 1000 MG 2 WEEKS APART AND THEN EVERY 6 MONTHS ;ONGOING: NO
     Route: 042
     Dates: start: 20190115, end: 20190115
  2. LOVENOX [Concomitant]
     Active Substance: ENOXAPARIN SODIUM
  3. XARELTO [Concomitant]
     Active Substance: RIVAROXABAN

REACTIONS (23)
  - Blood pressure increased [Recovered/Resolved]
  - Anxiety [Unknown]
  - Off label use [Unknown]
  - Dehydration [Recovered/Resolved]
  - Headache [Recovered/Resolved]
  - Memory impairment [Recovered/Resolved]
  - Blood magnesium decreased [Recovered/Resolved]
  - Electrolyte imbalance [Recovered/Resolved]
  - Nausea [Recovered/Resolved]
  - Hypertension [Recovered/Resolved]
  - Hyponatraemia [Unknown]
  - Hypoaesthesia [Recovered/Resolved]
  - Dysstasia [Recovered/Resolved]
  - Chest X-ray abnormal [Recovered/Resolved]
  - Diarrhoea [Recovered/Resolved]
  - Rash [Recovered/Resolved]
  - Motor dysfunction [Recovered/Resolved]
  - Dyspnoea [Recovered/Resolved]
  - Intentional product use issue [Unknown]
  - Fatigue [Unknown]
  - Sinusitis [Recovered/Resolved]
  - Hypovolaemia [Recovered/Resolved]
  - Vomiting [Recovered/Resolved]

NARRATIVE: CASE EVENT DATE: 20190115
